FAERS Safety Report 5224944-6 (Version None)
Quarter: 2007Q1

REPORT INFORMATION
  Report Type: 
  Country: None (occurrence: None)
  Receive Date: 20070126
  Receipt Date: 20070112
  Transmission Date: 20070707
  Serious: Yes (Hospitalization)
  Sender: FDA-Public Use
  Company Number: 2007SP000779

PATIENT
  Age: 47 Year
  Sex: Female

DRUGS (8)
  1. PEG-INTRON [Suspect]
     Indication: HEPATITIS B
     Dosage: 190 MCG; QW; SC
     Route: 058
     Dates: start: 20060607
  2. REBETOL [Suspect]
     Indication: HEPATITIS B
     Dosage: 1600 MG; QD; PO
     Route: 048
     Dates: start: 20060607
  3. PARACETAMOL [Concomitant]
  4. POTASSIUM CHLORIDE [Concomitant]
  5. SIMVASTATIN [Concomitant]
  6. ZOPIKLONE [Concomitant]
  7. MIRTAZAPINE [Concomitant]
  8. ANTIVIRALS NOS [Concomitant]

REACTIONS (3)
  - ANAEMIA [None]
  - DEEP VEIN THROMBOSIS [None]
  - FATIGUE [None]
